FAERS Safety Report 4635731-1 (Version None)
Quarter: 2005Q2

REPORT INFORMATION
  Report Type: 
  Country: None (occurrence: None)
  Receive Date: 20050413
  Receipt Date: 20050330
  Transmission Date: 20051028
  Serious: Yes (Hospitalization, Other)
  Sender: FDA-Public Use
  Company Number: HQWYE775802MAR05

PATIENT
  Age: 76 Year
  Sex: Male
  Weight: 73.6 kg

DRUGS (20)
  1. RAPAMUNE [Suspect]
     Indication: PROPHYLAXIS AGAINST TRANSPLANT REJECTION
     Dosage: 3 MG 1X PER 1 DAY, ORAL
     Route: 048
     Dates: start: 20050131
  2. RAPAMUNE [Suspect]
  3. COUMADIN [Concomitant]
  4. MYCELEX [Concomitant]
  5. PRAVACHOL [Concomitant]
  6. FLONASE [Concomitant]
  7. THERAGRAN-M (MINERALS NOS/VITAMINS NOS) [Concomitant]
  8. ALBUTEROL [Concomitant]
  9. COMBIVENT [Concomitant]
  10. LANTUS [Concomitant]
  11. NOVOLOG [Concomitant]
  12. NEXIUM [Concomitant]
  13. ATENOLOL [Concomitant]
  14. PREDNISONE [Concomitant]
  15. BACTRIM [Concomitant]
  16. VALCYTE [Concomitant]
  17. FLOMAX [Concomitant]
  18. PROGRAF [Concomitant]
  19. NORVASC [Concomitant]
  20. NEURONTIN [Concomitant]

REACTIONS (8)
  - ANAEMIA [None]
  - ATRIAL FIBRILLATION [None]
  - CONDITION AGGRAVATED [None]
  - PLATELET COUNT DECREASED [None]
  - POSTOPERATIVE WOUND COMPLICATION [None]
  - TREATMENT NONCOMPLIANCE [None]
  - TROPONIN T INCREASED [None]
  - URINARY TRACT INFECTION PSEUDOMONAL [None]
